FAERS Safety Report 10671803 (Version 1)
Quarter: 2014Q4

REPORT INFORMATION
  Report Type: Spontaneous
  Country: US (occurrence: None)
  Receive Date: 20141222
  Receipt Date: 20141222
  Transmission Date: 20150529
  Serious: No
  Sender: FDA-Public Use
  Company Number: None

PATIENT
  Age: 65 Year
  Sex: Female

DRUGS (1)
  1. SOVALDI [Suspect]
     Active Substance: SOFOSBUVIR

REACTIONS (4)
  - Jaundice [None]
  - Abdominal distension [None]
  - Flatulence [None]
  - Abdominal pain [None]

NARRATIVE: CASE EVENT DATE: 20141218
